FAERS Safety Report 15900849 (Version 2)
Quarter: 2019Q1

REPORT INFORMATION
  Report Type: Report from Study
  Country: IT (occurrence: IT)
  Receive Date: 20190201
  Receipt Date: 20190223
  Transmission Date: 20190417
  Serious: Yes (Other)
  Sender: FDA-Public Use
  Company Number: IT-ACCORD-104975

PATIENT
  Age: 63 Year
  Sex: Male
  Weight: 76 kg

DRUGS (3)
  1. OXALIPLATIN TEVA [Suspect]
     Active Substance: OXALIPLATIN
     Indication: OESOPHAGEAL ADENOCARCINOMA
     Route: 042
     Dates: start: 20180328, end: 20180723
  2. LEVOFOLINATE CALCIUM TEVA [Concomitant]
     Indication: OESOPHAGEAL ADENOCARCINOMA
     Route: 042
     Dates: start: 20180328
  3. FLUOROURACILE AHCL [Suspect]
     Active Substance: FLUOROURACIL
     Indication: OESOPHAGEAL ADENOCARCINOMA
     Route: 042
     Dates: start: 20180328

REACTIONS (4)
  - Leukopenia [Not Recovered/Not Resolved]
  - Neutropenia [Not Recovered/Not Resolved]
  - Anaemia [Not Recovered/Not Resolved]
  - Erythropenia [Not Recovered/Not Resolved]

NARRATIVE: CASE EVENT DATE: 20180416
